FAERS Safety Report 8134901-8 (Version None)
Quarter: 2012Q1

REPORT INFORMATION
  Report Type: 
  Country: None (occurrence: None)
  Receive Date: 20120214
  Receipt Date: 20120206
  Transmission Date: 20120608
  Serious: Yes (Other)
  Sender: FDA-Public Use
  Company Number: FR-B.I. PHARMACEUTICALS,INC./RIDGEFIELD-2011-FF-01181FF

PATIENT
  Age: 37 Year
  Sex: Male

DRUGS (1)
  1. SPIRIVA [Suspect]
     Indication: ASTHMA
     Dosage: 5 MG
     Route: 055
     Dates: start: 20111104

REACTIONS (4)
  - DYSPNOEA [None]
  - TACHYCARDIA [None]
  - DRY MOUTH [None]
  - FEELING COLD [None]
